FAERS Safety Report 5722123-7 (Version None)
Quarter: 2008Q2

REPORT INFORMATION
  Report Type: 
  Country: None (occurrence: None)
  Receive Date: 20080429
  Receipt Date: 20070618
  Transmission Date: 20081010
  Serious: No
  Sender: FDA-Public Use
  Company Number: US-ASTRAZENECA-2007UW14517

PATIENT
  Age: 73 Year
  Sex: Female
  Weight: 69.9 kg

DRUGS (4)
  1. NEXIUM [Suspect]
     Indication: GASTROOESOPHAGEAL REFLUX DISEASE
     Route: 048
  2. GLUCOSIDE [Concomitant]
  3. LISINOPRIL [Concomitant]
     Route: 048
  4. LOMAXAIL [Concomitant]

REACTIONS (2)
  - DIZZINESS [None]
  - RECTAL HAEMORRHAGE [None]
